FAERS Safety Report 11661208 (Version 3)
Quarter: 2015Q4

REPORT INFORMATION
  Report Type: Report from Study
  Country: NL (occurrence: NL)
  Receive Date: 20151026
  Receipt Date: 20151127
  Transmission Date: 20160304
  Serious: Yes (Other)
  Sender: FDA-Public Use
  Company Number: NL-AMGEN-NLDSL2015110062

PATIENT
  Age: 74 Year
  Sex: Male

DRUGS (15)
  1. CALCIUM CARBONATE. [Concomitant]
     Active Substance: CALCIUM CARBONATE
     Dosage: 1.25G/440IE
     Dates: start: 20150818, end: 20151017
  2. ACETYLCYSTEINE. [Concomitant]
     Active Substance: ACETYLCYSTEINE
     Dosage: 600 MG, UNK
     Route: 048
     Dates: start: 20150929
  3. XGEVA [Suspect]
     Active Substance: DENOSUMAB
     Indication: METASTASES TO BONE
     Dosage: 120 MG, Q4WK
     Route: 058
     Dates: start: 20130923
  4. LIDOCAINE. [Concomitant]
     Active Substance: LIDOCAINE
     Dosage: 3 %, UNK
     Dates: start: 20150623, end: 20150722
  5. PARACETAMOL [Concomitant]
     Active Substance: ACETAMINOPHEN
     Dosage: 1000 MG, UNK
     Route: 048
     Dates: start: 20150715
  6. DEXAMETHASON                       /00016001/ [Concomitant]
     Active Substance: DEXAMETHASONE
     Dosage: 0.5 MG, UNK
     Route: 048
     Dates: start: 20150714
  7. DICLOFENAC [Concomitant]
     Active Substance: DICLOFENAC
     Dosage: 50 MG, UNK
     Route: 048
     Dates: start: 20150910, end: 20150919
  8. POVIDON [Concomitant]
     Dosage: 0.4 UNK, UNK
  9. SALBUTAMOL [Concomitant]
     Active Substance: ALBUTEROL
     Dosage: 100 MCG/DO SPBS 200 DO +INH
     Dates: start: 20150414, end: 20150910
  10. MISOPROSTOL. [Concomitant]
     Active Substance: MISOPROSTOL
     Dosage: 200 MUG, UNK
     Route: 048
     Dates: start: 20150910, end: 20150919
  11. OMEPRAZOL                          /00661201/ [Concomitant]
     Active Substance: OMEPRAZOLE
     Dosage: 40 MG, UNK
     Dates: start: 20150522, end: 20151011
  12. DOXYCYCLINE. [Concomitant]
     Active Substance: DOXYCYCLINE
     Dosage: 100 MG, UNK
     Route: 048
     Dates: start: 20150930, end: 20151006
  13. GOSERELINE [Concomitant]
     Active Substance: GOSERELIN
     Dosage: 10.8 MG, UNK
     Dates: start: 20150624
  14. FENTANYL. [Concomitant]
     Active Substance: FENTANYL
     Dosage: 50UG/UUR
     Dates: start: 20150710
  15. GRANISETRON [Concomitant]
     Active Substance: GRANISETRON
     Dosage: 2 MG, UNK
     Route: 048
     Dates: start: 20150813

REACTIONS (17)
  - Diarrhoea [Unknown]
  - Blood urine present [Unknown]
  - Pneumonia [Unknown]
  - Pulmonary embolism [Unknown]
  - Nausea [Unknown]
  - Hypocalcaemia [Unknown]
  - Metastases to bone [Unknown]
  - Enteritis [Unknown]
  - Pollakiuria [Unknown]
  - Prostate cancer metastatic [Unknown]
  - Malaise [Unknown]
  - Back pain [Unknown]
  - Hepatic steatosis [Unknown]
  - Pancytopenia [Unknown]
  - Pain in extremity [Unknown]
  - Dysuria [Unknown]
  - Anal abscess [Unknown]

NARRATIVE: CASE EVENT DATE: 20131225
